FAERS Safety Report 22198702 (Version 1)
Quarter: 2023Q2

REPORT INFORMATION
  Report Type: Spontaneous
  Country: CZ (occurrence: None)
  Receive Date: 20230411
  Receipt Date: 20230411
  Transmission Date: 20230721
  Serious: Yes (Other)
  Sender: FDA-Public Use
  Company Number: 2023A081760

PATIENT
  Sex: Female

DRUGS (2)
  1. FASLODEX [Suspect]
     Active Substance: FULVESTRANT
     Indication: Breast cancer
     Route: 030
     Dates: start: 201902
  2. KISQALI [Suspect]
     Active Substance: RIBOCICLIB
     Indication: Breast cancer
     Dosage: DIE 1.-21. DAY, REPEATING EVERY 28 DAYS.
     Route: 048
     Dates: start: 201902

REACTIONS (3)
  - Metastases to bone [Unknown]
  - Asthenia [Unknown]
  - Fatigue [Unknown]
